FAERS Safety Report 17515285 (Version 1)
Quarter: 2020Q1

REPORT INFORMATION
  Report Type: Spontaneous
  Country: GB (occurrence: GB)
  Receive Date: 20200309
  Receipt Date: 20200309
  Transmission Date: 20200409
  Serious: Yes (Other)
  Sender: FDA-Public Use
  Company Number: GB-TEVA-2020-GB-1195528

PATIENT
  Age: 22 Year
  Sex: Female
  Weight: 73 kg

DRUGS (7)
  1. QUETIAPINE. [Concomitant]
     Active Substance: QUETIAPINE
     Dosage: AT NIGHT 2 DOSAGE FORMS
     Dates: start: 20191001
  2. DESOGESTREL [Concomitant]
     Active Substance: DESOGESTREL
     Dosage: 1 DOSAGE FORMS
     Dates: start: 20200108
  3. CITALOPRAM [Concomitant]
     Active Substance: CITALOPRAM HYDROBROMIDE
     Dosage: USE AS DIRECTED
     Dates: start: 20200108
  4. NITROFURANTOIN. [Suspect]
     Active Substance: NITROFURANTOIN
     Dosage: 100 MG
     Route: 065
     Dates: start: 20200108
  5. NITROFURANTOIN. [Suspect]
     Active Substance: NITROFURANTOIN
     Dosage: 2 DOSAGE FORMS
     Dates: start: 20191220, end: 20191223
  6. NAPROXEN. [Concomitant]
     Active Substance: NAPROXEN
     Dosage: 3 DOSAGE FORMS
     Dates: start: 20191220, end: 20200103
  7. DUAC [Concomitant]
     Active Substance: BENZOYL PEROXIDE\CLINDAMYCIN PHOSPHATE
     Dosage: APPLY AT NIGHT, 1 DOSAGE FORMS
     Dates: start: 20180718

REACTIONS (1)
  - Gastroenteritis viral [Recovered/Resolved]

NARRATIVE: CASE EVENT DATE: 20200114
